FAERS Safety Report 4614937-1 (Version None)
Quarter: 2005Q1

REPORT INFORMATION
  Report Type: 
  Country: None (occurrence: None)
  Receive Date: 20050318
  Receipt Date: 20050318
  Transmission Date: 20050727
  Serious: Yes (Life-Threatening, Disabling, Other)
  Sender: FDA-Public Use
  Company Number: None

PATIENT
  Age: 52 Year
  Sex: Male
  Weight: 83.4619 kg

DRUGS (2)
  1. PAXIL [Suspect]
     Indication: ANXIETY
     Dosage: ONE A DAY
     Dates: start: 20010101, end: 20040101
  2. PAXIL [Suspect]
     Indication: HYPERTENSION
     Dosage: ONE A DAY
     Dates: start: 20010101, end: 20040101

REACTIONS (7)
  - ABNORMAL BEHAVIOUR [None]
  - AGGRESSION [None]
  - APATHY [None]
  - DEPRESSION [None]
  - MANIA [None]
  - SUICIDE ATTEMPT [None]
  - WEIGHT DECREASED [None]
